FAERS Safety Report 4569731-7 (Version None)
Quarter: 2005Q1

REPORT INFORMATION
  Report Type: 
  Country: None (occurrence: None)
  Receive Date: 20050131
  Receipt Date: 20050118
  Transmission Date: 20050727
  Serious: Yes (Hospitalization)
  Sender: FDA-Public Use
  Company Number: 2004106485

PATIENT
  Age: 66 Year
  Sex: Female
  Weight: 67 kg

DRUGS (6)
  1. ALDACTONE [Suspect]
     Dosage: ORAL
     Route: 048
     Dates: end: 20040513
  2. AROTINOLOL HYDROCHLORIDE 9AROTINOLOL HYDROCHLORIDE) [Suspect]
     Indication: HYPERTENSION
     Dosage: 20 MG (10 MG TWICE DAILY) ORAL
     Route: 048
  3. CANDESARTAN CILEXETIL (CANDESARTAN CILEXETIL) [Suspect]
     Indication: HYPERTENSION
     Dosage: 8 MG (8MG DAILY) ORAL
     Route: 048
  4. NIFEDIPINE [Concomitant]
  5. NICARDIPINE HCL [Concomitant]
  6. URSODEOXYCHOLIC ACID (URSODEOXYCHOLIC ACID) [Concomitant]

REACTIONS (10)
  - ATRIOVENTRICULAR BLOCK COMPLETE [None]
  - DEPRESSED LEVEL OF CONSCIOUSNESS [None]
  - DRUG INTERACTION [None]
  - HAEMODIALYSIS [None]
  - HEPATIC CIRRHOSIS [None]
  - HEPATIC FUNCTION ABNORMAL [None]
  - HYPERKALAEMIA [None]
  - MONOCYTE COUNT DECREASED [None]
  - NEUTROPHIL COUNT INCREASED [None]
  - WHITE BLOOD CELL COUNT INCREASED [None]
